FAERS Safety Report 4649771-X (Version None)
Quarter: 2005Q2

REPORT INFORMATION
  Report Type: 
  Country: None (occurrence: None)
  Receive Date: 20050427
  Receipt Date: 20050415
  Transmission Date: 20051028
  Serious: Yes (Hospitalization)
  Sender: FDA-Public Use
  Company Number: 05P-163-0297699-00

PATIENT
  Age: 51 Year
  Sex: Male

DRUGS (13)
  1. KALETRA [Suspect]
     Indication: HIV INFECTION
  2. VIREAD [Suspect]
     Indication: HIV INFECTION
     Dosage: 300 MG, 1 IN 1 D, PER ORAL
     Route: 048
     Dates: start: 20020118
  3. ABACAVIR [Suspect]
     Indication: HIV INFECTION
  4. DIDANOSINE [Suspect]
     Indication: HIV INFECTION
  5. CARISOPRODOL [Concomitant]
  6. FENTANYL [Concomitant]
  7. FLUCONAZOLE [Concomitant]
  8. GLIBENCLAMIDE [Concomitant]
  9. PROMETHAZINE [Concomitant]
  10. RABEPRAZOLE SODIUM [Concomitant]
  11. BACTRIM [Concomitant]
  12. LORATADINE [Concomitant]
  13. VICODIN [Concomitant]

REACTIONS (33)
  - ABDOMINAL DISTENSION [None]
  - ASCITES [None]
  - BONE MARROW OEDEMA [None]
  - CHEST PAIN [None]
  - CHILLS [None]
  - CHOLESTASIS [None]
  - DECREASED APPETITE [None]
  - DIZZINESS [None]
  - DYSPNOEA [None]
  - DYSPNOEA EXERTIONAL [None]
  - FANCONI SYNDROME [None]
  - HEART RATE INCREASED [None]
  - HEPATIC FAILURE [None]
  - HEPATIC STEATOSIS [None]
  - LACTIC ACIDOSIS [None]
  - METABOLIC ACIDOSIS [None]
  - OEDEMA PERIPHERAL [None]
  - ORTHOPNOEA [None]
  - PAIN IN EXTREMITY [None]
  - PANCREATITIS [None]
  - POLYDIPSIA [None]
  - POLYURIA [None]
  - PORTAL HYPERTENSION [None]
  - PROSTATIC ABSCESS [None]
  - PROSTATITIS [None]
  - PROTEIN TOTAL DECREASED [None]
  - RENAL CYST [None]
  - RENAL DISORDER [None]
  - RENAL TUBULAR ACIDOSIS [None]
  - SPINAL OSTEOARTHRITIS [None]
  - VISION BLURRED [None]
  - WEIGHT DECREASED [None]
  - WEIGHT INCREASED [None]
